FAERS Safety Report 5660984-0 (Version None)
Quarter: 2008Q1

REPORT INFORMATION
  Report Type: 
  Country: None (occurrence: None)
  Receive Date: 20080311
  Receipt Date: 20080228
  Transmission Date: 20080703
  Serious: Yes (Life-Threatening, Hospitalization, Other)
  Sender: FDA-Public Use
  Company Number: DE-PFIZER INC-2008002525

PATIENT
  Sex: Male
  Weight: 57 kg

DRUGS (7)
  1. CHANTIX [Suspect]
     Indication: NICOTINE DEPENDENCE
     Route: 048
     Dates: start: 20070601, end: 20071216
  2. ASPIRIN [Concomitant]
     Route: 048
  3. CLOPIDOGREL [Concomitant]
     Route: 048
  4. SIMVASTATIN [Concomitant]
     Route: 048
  5. NEBILET [Concomitant]
     Route: 048
  6. ZOPICLONE [Concomitant]
  7. TRAMADOL HCL [Concomitant]
     Route: 048

REACTIONS (8)
  - ARTERIAL BYPASS OPERATION [None]
  - DEPRESSION [None]
  - DEVICE OCCLUSION [None]
  - HALLUCINATION, VISUAL [None]
  - HYPERSOMNIA [None]
  - NIGHTMARE [None]
  - SUICIDAL IDEATION [None]
  - SUICIDE ATTEMPT [None]
